FAERS Safety Report 4817669-X (Version None)
Quarter: 2005Q4

REPORT INFORMATION
  Report Type: 
  Country: None (occurrence: None)
  Receive Date: 20051101
  Receipt Date: 20051101
  Transmission Date: 20060501
  Serious: Yes (Other)
  Sender: FDA-Public Use
  Company Number: None

PATIENT
  Age: 81 Year
  Sex: Female
  Weight: 77.1115 kg

DRUGS (12)
  1. FENTANYL [Suspect]
     Indication: BACK PAIN
     Dosage: 5.10 MG FENTANYL Q 72 HOURS TRANSDERMAL
     Route: 062
     Dates: start: 20050930, end: 20051030
  2. OXYCODONE AND ACETAMINOPHEN [Concomitant]
  3. LISINOPRIL [Concomitant]
  4. HYDROCHLOROTHIAZIDE [Concomitant]
  5. TRAZODONE HCL [Concomitant]
  6. QUININE SULFATE [Concomitant]
  7. CK [Concomitant]
  8. NEURONTIN [Concomitant]
  9. SINAMET [Concomitant]
  10. ATENOLOL [Concomitant]
  11. ASPIRIN [Concomitant]
  12. PLAVIX [Concomitant]

REACTIONS (2)
  - PHARMACEUTICAL PRODUCT COMPLAINT [None]
  - THERAPEUTIC PRODUCT INEFFECTIVE [None]
